FAERS Safety Report 9407230 (Version 4)
Quarter: 2014Q1

REPORT INFORMATION
  Report Type: Spontaneous
  Country: US (occurrence: US)
  Receive Date: 20130718
  Receipt Date: 20140213
  Transmission Date: 20141002
  Serious: Yes (Other)
  Sender: FDA-Public Use
  Company Number: US-PFIZER INC-2013210601

PATIENT
  Age: 67 Year
  Sex: Female
  Weight: 97.51 kg

DRUGS (5)
  1. ENBREL [Suspect]
     Indication: RHEUMATOID ARTHRITIS
     Dosage: UNK
  2. CELEBREX [Suspect]
     Indication: ADENOMATOUS POLYPOSIS COLI
     Dosage: 200 MG, BID
     Route: 048
  3. CELEBREX [Suspect]
     Indication: ARTHRALGIA
  4. CELEBREX [Suspect]
     Indication: ARTHRALGIA
  5. PREMARIN [Suspect]
     Indication: HYSTERECTOMY
     Dosage: 0.45 MG, QD
     Route: 048
     Dates: start: 2011, end: 201211

REACTIONS (1)
  - Back disorder [Unknown]
